FAERS Safety Report 4960662-7 (Version None)
Quarter: 2006Q2

REPORT INFORMATION
  Report Type: 
  Country: None (occurrence: None)
  Receive Date: 20060403
  Receipt Date: 20051006
  Transmission Date: 20061013
  Serious: Yes (Hospitalization)
  Sender: FDA-Public Use
  Company Number: US-MERCK-0510USA05555

PATIENT
  Age: 58 Year
  Sex: Female
  Weight: 77 kg

DRUGS (1)
  1. VIOXX [Suspect]
     Indication: PAIN
     Route: 048
     Dates: start: 19990101, end: 20040101

REACTIONS (20)
  - ACUTE MYOCARDIAL INFARCTION [None]
  - ANAEMIA [None]
  - ANGINA UNSTABLE [None]
  - ANXIETY [None]
  - ARTERIAL INJURY [None]
  - BLOOD POTASSIUM DECREASED [None]
  - CATHETER SITE HAEMATOMA [None]
  - CORONARY ARTERY DISEASE [None]
  - CORONARY ARTERY OCCLUSION [None]
  - CORONARY ARTERY RESTENOSIS [None]
  - CORONARY ARTERY STENOSIS [None]
  - DEPRESSION [None]
  - DIABETES MELLITUS NON-INSULIN-DEPENDENT [None]
  - DYSLIPIDAEMIA [None]
  - GASTRITIS [None]
  - HYPERTENSION [None]
  - TRICUSPID VALVE INCOMPETENCE [None]
  - VENTRICULAR FIBRILLATION [None]
  - VENTRICULAR HYPERTROPHY [None]
  - VIRAL INFECTION [None]
